FAERS Safety Report 5653814-4 (Version None)
Quarter: 2008Q1

REPORT INFORMATION
  Report Type: 
  Country: None (occurrence: None)
  Receive Date: 20080131
  Receipt Date: 20071008
  Transmission Date: 20080703
  Serious: No
  Sender: FDA-Public Use
  Company Number: US200710002280

PATIENT
  Age: 61 Year
  Sex: Female
  Weight: 90.7 kg

DRUGS (5)
  1. BYETTA [Suspect]
     Indication: INSULIN-REQUIRING TYPE 2 DIABETES MELLITUS
     Dosage: 5 UG, 2/D, SUBCUTANEOUS ; 10 UG, 2/D, SUBCUTANEOUS
     Route: 058
     Dates: start: 20070101, end: 20070201
  2. BYETTA [Suspect]
     Indication: INSULIN-REQUIRING TYPE 2 DIABETES MELLITUS
     Dosage: 5 UG, 2/D, SUBCUTANEOUS ; 10 UG, 2/D, SUBCUTANEOUS
     Route: 058
     Dates: start: 20070201
  3. LEVEMIR (INSULIN DETEMIR) [Concomitant]
  4. METFORMIN HCL [Concomitant]
  5. GLUCOTROL [Concomitant]

REACTIONS (8)
  - BACK PAIN [None]
  - BLOOD GLUCOSE DECREASED [None]
  - BLOOD GLUCOSE INCREASED [None]
  - DECREASED APPETITE [None]
  - GLYCOSYLATED HAEMOGLOBIN INCREASED [None]
  - NAUSEA [None]
  - PAIN IN EXTREMITY [None]
  - WEIGHT INCREASED [None]
